FAERS Safety Report 12736290 (Version 6)
Quarter: 2016Q4

REPORT INFORMATION
  Report Type: Report from Study
  Country: US (occurrence: US)
  Receive Date: 20160912
  Receipt Date: 20161021
  Transmission Date: 20170207
  Serious: Yes (Hospitalization)
  Sender: FDA-Public Use
  Company Number: US-ACTELION-A-US2016-141707

PATIENT
  Age: 34 Year
  Sex: Male

DRUGS (4)
  1. LETAIRIS [Concomitant]
     Active Substance: AMBRISENTAN
  2. VELETRI [Suspect]
     Active Substance: EPOPROSTENOL
     Indication: PULMONARY ARTERIAL HYPERTENSION
     Dosage: 4 NG/KG, PER MIN
     Route: 042
     Dates: start: 20160826
  3. ADCIRCA [Concomitant]
     Active Substance: TADALAFIL
  4. COUMADIN [Concomitant]
     Active Substance: WARFARIN SODIUM

REACTIONS (12)
  - Dizziness [Unknown]
  - Musculoskeletal chest pain [Recovered/Resolved]
  - Pain in jaw [Unknown]
  - Pain in extremity [Unknown]
  - Neck pain [Recovered/Resolved]
  - Back pain [Unknown]
  - Headache [Recovered/Resolved]
  - Chest pain [Unknown]
  - Arthralgia [Unknown]
  - Myalgia [Unknown]
  - Cough [Unknown]
  - Rash generalised [Unknown]
